FAERS Safety Report 8162912-5 (Version None)
Quarter: 2012Q1

REPORT INFORMATION
  Report Type: 
  Country: None (occurrence: None)
  Receive Date: 20120224
  Receipt Date: 20120221
  Transmission Date: 20120608
  Serious: No
  Sender: FDA-Public Use
  Company Number: US-PFIZER INC-2012047126

PATIENT
  Sex: Female
  Weight: 70.295 kg

DRUGS (3)
  1. NEURONTIN [Suspect]
     Dosage: 600 MG, 4X/DAY
     Route: 048
  2. NEURONTIN [Suspect]
     Indication: PERIPHERAL NERVE NEUROSTIMULATION
     Dosage: 300 MG, 3X/DAY
     Route: 048
     Dates: start: 20090101
  3. LISINOPRIL [Concomitant]
     Indication: BLOOD PRESSURE ABNORMAL
     Dosage: 10 MG, DAILY

REACTIONS (1)
  - NASOPHARYNGITIS [None]
